FAERS Safety Report 23598563 (Version 1)
Quarter: 2024Q1

REPORT INFORMATION
  Report Type: Spontaneous
  Country: US (occurrence: US)
  Receive Date: 20240306
  Receipt Date: 20240306
  Transmission Date: 20240410
  Serious: No
  Sender: FDA-Public Use
  Company Number: None

PATIENT
  Sex: Male

DRUGS (3)
  1. PREDNISONE [Suspect]
     Active Substance: PREDNISONE
     Indication: Mucous membrane pemphigoid
     Dosage: 60 MILLIGRAM, QD FOR 4-6 WEEKS
     Route: 065
  2. DAPSONE [Concomitant]
     Active Substance: DAPSONE
     Indication: Anaemia
     Dosage: 100 MILLIGRAM, QD
     Route: 065
  3. DAPSONE [Concomitant]
     Active Substance: DAPSONE
     Dosage: 50 MILLIGRAM, DOSE REDUCED
     Route: 065

REACTIONS (1)
  - Hypertension [Unknown]
